FAERS Safety Report 16658128 (Version 6)
Quarter: 2020Q3

REPORT INFORMATION
  Report Type: Report from Study
  Country: US (occurrence: US)
  Receive Date: 20190801
  Receipt Date: 20200811
  Transmission Date: 20201102
  Serious: Yes (Hospitalization)
  Sender: FDA-Public Use
  Company Number: US-ACTELION-A-NJ2016-133153

PATIENT
  Age: 54 Year
  Sex: Female
  Weight: 79.37 kg

DRUGS (43)
  1. VITAMIN B12 [Concomitant]
     Active Substance: CYANOCOBALAMIN
  2. ERGOCALCIFEROL. [Concomitant]
     Active Substance: ERGOCALCIFEROL
     Dosage: 50000 U, 2X/WEEK
     Dates: start: 20170515
  3. SPIRONOLACTONE. [Concomitant]
     Active Substance: SPIRONOLACTONE
     Dosage: 50 MG, QPM
     Route: 048
     Dates: start: 20170515
  4. OPSUMIT [Suspect]
     Active Substance: MACITENTAN
     Dosage: 5 MG, QD
     Route: 048
  5. UPTRAVI [Suspect]
     Active Substance: SELEXIPAG
     Indication: PULMONARY ARTERIAL HYPERTENSION
     Dosage: 200 MCG, BID
     Route: 048
     Dates: start: 20181203, end: 20190721
  6. UPTRAVI [Suspect]
     Active Substance: SELEXIPAG
     Dosage: 200 MCG, BID
     Route: 048
     Dates: start: 20160225
  7. COUMADIN [Concomitant]
     Active Substance: WARFARIN SODIUM
  8. DOCUSATE SODIUM. [Concomitant]
     Active Substance: DOCUSATE SODIUM
     Dosage: 100 MCG, BID
     Dates: start: 20171211
  9. METFORMIN [Concomitant]
     Active Substance: METFORMIN HYDROCHLORIDE
     Dosage: 500 MG
     Dates: start: 20141027
  10. UPTRAVI [Suspect]
     Active Substance: SELEXIPAG
     Dosage: 1000 MCG, BID
     Route: 048
  11. DEXTROMETHORPHAN HBR + GUAIFENESIN [Concomitant]
     Active Substance: DEXTROMETHORPHAN HYDROBROMIDE\GUAIFENESIN
     Indication: PULMONARY HYPERTENSION
  12. KLOR?CON [Concomitant]
     Active Substance: POTASSIUM CHLORIDE
     Dosage: 20 MEQ
     Dates: start: 20140920
  13. ONDANSETRON [Concomitant]
     Active Substance: ONDANSETRON
     Indication: NAUSEA
     Dosage: 4 MG, Q8HRS AS NEEDED
     Dates: start: 20160728
  14. ONDANSETRON [Concomitant]
     Active Substance: ONDANSETRON
     Indication: VOMITING
  15. VALACYCLOVIR HCL [Concomitant]
     Active Substance: VALACYCLOVIR HYDROCHLORIDE
     Indication: ORAL HERPES
     Dosage: 1 G, Q12HRS AS NEEDED
     Route: 048
     Dates: start: 20180703
  16. OXYGEN. [Concomitant]
     Active Substance: OXYGEN
     Indication: CHRONIC OBSTRUCTIVE PULMONARY DISEASE
     Dosage: 3 L/MIN
     Route: 045
     Dates: start: 20170522
  17. ALBUTEROL HFA [Concomitant]
     Active Substance: ALBUTEROL SULFATE
     Indication: WHEEZING
     Dosage: 108 MCG, Q4HRS AS NEED
     Dates: start: 20170615
  18. BUMETANIDE. [Concomitant]
     Active Substance: BUMETANIDE
     Dosage: 1 MG
     Dates: start: 20180326
  19. DICYCLOMINE [Concomitant]
     Active Substance: DICYCLOMINE HYDROCHLORIDE
     Dosage: UNK
     Dates: start: 20170403
  20. RANITIDINE. [Concomitant]
     Active Substance: RANITIDINE
     Dosage: 150 MG, QPM
     Dates: start: 20170823, end: 20190801
  21. SODIUM CHLORIDE. [Concomitant]
     Active Substance: SODIUM CHLORIDE
     Dosage: UNK
     Dates: start: 20171216
  22. ROFLUMILAST. [Concomitant]
     Active Substance: ROFLUMILAST
     Dosage: 500 MCG, QD
     Route: 048
     Dates: start: 20170515, end: 20200211
  23. UPTRAVI [Suspect]
     Active Substance: SELEXIPAG
     Dosage: 1200 MCG, BID
     Route: 048
     Dates: start: 20160808
  24. ESOMEPRAZOLE. [Concomitant]
     Active Substance: ESOMEPRAZOLE MAGNESIUM
     Dosage: 40 MG, QAM
     Dates: start: 20140930
  25. ADEMPAS [Concomitant]
     Active Substance: RIOCIGUAT
  26. TRELEGY ELLIPTA [Concomitant]
     Active Substance: FLUTICASONE FUROATE\UMECLIDINIUM BROMIDE\VILANTEROL TRIFENATATE
     Dosage: 100 MCG, QD
     Dates: start: 20180806
  27. OPSUMIT [Suspect]
     Active Substance: MACITENTAN
     Dosage: UNK
     Route: 048
  28. ADCIRCA [Concomitant]
     Active Substance: TADALAFIL
     Dosage: 40 MG, QD
     Dates: start: 20170515
  29. TADALAFIL. [Concomitant]
     Active Substance: TADALAFIL
  30. WARFARIN [Concomitant]
     Active Substance: WARFARIN
     Dosage: 1.5 MG, QD
     Dates: start: 20170403
  31. DEXTROMETHORPHAN HBR + GUAIFENESIN [Concomitant]
     Active Substance: DEXTROMETHORPHAN HYDROBROMIDE\GUAIFENESIN
     Indication: COUGH
     Dosage: 1200 MG, BID
     Route: 048
     Dates: start: 20180105
  32. DICLOFENAC [Concomitant]
     Active Substance: DICLOFENAC
     Dosage: 2 G, TID
     Route: 061
     Dates: start: 20190311
  33. FLUTICASONE. [Concomitant]
     Active Substance: FLUTICASONE
     Dosage: 50 MCG, QD
     Route: 045
     Dates: start: 20160317
  34. DILTIAZEM. [Concomitant]
     Active Substance: DILTIAZEM
  35. ACETAMINOPHEN. [Concomitant]
     Active Substance: ACETAMINOPHEN
     Indication: PAIN
     Dosage: 325 MG, Q6HRS PRN
     Dates: start: 20171217
  36. OPSUMIT [Suspect]
     Active Substance: MACITENTAN
     Indication: PULMONARY ARTERIAL HYPERTENSION
     Dosage: 10 MG, QD
     Route: 048
     Dates: start: 20150414, end: 20190724
  37. SILDENAFIL. [Suspect]
     Active Substance: SILDENAFIL
     Indication: PRODUCT USED FOR UNKNOWN INDICATION
     Route: 065
  38. DIGOXIN. [Concomitant]
     Active Substance: DIGOXIN
     Dosage: 125 MCG, QD
     Route: 048
     Dates: start: 20170505, end: 20190811
  39. MONTELUKAST [Concomitant]
     Active Substance: MONTELUKAST SODIUM
     Dosage: 10 MG, QPM
     Dates: start: 20090507
  40. UPTRAVI [Suspect]
     Active Substance: SELEXIPAG
     Dosage: 800 MCG, BID
     Route: 048
  41. UPTRAVI [Suspect]
     Active Substance: SELEXIPAG
     Dosage: 400 MCG, BID
     Route: 048
  42. AMITIPTYLINE [Concomitant]
     Active Substance: AMITRIPTYLINE
     Dosage: 25 MG, QPM
     Dates: start: 20190425
  43. RIOCIGUAT. [Concomitant]
     Active Substance: RIOCIGUAT
     Dosage: 0.5 MG
     Dates: start: 20190709

REACTIONS (48)
  - Myalgia [Unknown]
  - Blood pressure abnormal [Unknown]
  - Contusion [Unknown]
  - Sneezing [Unknown]
  - Gout [Unknown]
  - Oxygen saturation decreased [Unknown]
  - Fluid overload [Unknown]
  - Cough [Recovering/Resolving]
  - Chest pain [Unknown]
  - Nasopharyngitis [Unknown]
  - Dyspnoea [Recovered/Resolved]
  - Pain in jaw [Unknown]
  - Nausea [Unknown]
  - Night sweats [Unknown]
  - Rash [Unknown]
  - Hypotension [Unknown]
  - Feeling abnormal [Unknown]
  - Oxygen consumption increased [Unknown]
  - Asthenia [Unknown]
  - Constipation [Unknown]
  - Diarrhoea [Unknown]
  - Nasal congestion [Unknown]
  - Abdominal pain [Unknown]
  - Sinusitis [Unknown]
  - Weight increased [Unknown]
  - Unevaluable event [Unknown]
  - Hospitalisation [Unknown]
  - Dyspnoea at rest [Not Recovered/Not Resolved]
  - Aphthous ulcer [Unknown]
  - Pain [Unknown]
  - Dizziness [Recovering/Resolving]
  - Lethargy [Unknown]
  - Rhinorrhoea [Unknown]
  - Eye pruritus [Unknown]
  - Chest discomfort [Unknown]
  - Fatigue [Unknown]
  - Abdominal pain upper [Unknown]
  - Condition aggravated [Unknown]
  - Pain in extremity [Unknown]
  - Tinnitus [Unknown]
  - Abdominal distension [Unknown]
  - Flatulence [Unknown]
  - Blood gases abnormal [Unknown]
  - Dyspnoea exertional [Not Recovered/Not Resolved]
  - Respiratory distress [Unknown]
  - Respiratory disorder [Unknown]
  - Back pain [Unknown]
  - Headache [Unknown]

NARRATIVE: CASE EVENT DATE: 20160611
